FAERS Safety Report 8750654 (Version 2)
Quarter: 2012Q4

REPORT INFORMATION
  Report Type: Spontaneous
  Country: None (occurrence: None)
  Receive Date: 20120810
  Receipt Date: 20121005
  Transmission Date: 20130627
  Serious: Yes (Life-Threatening, Hospitalization)
  Sender: FDA-Public Use
  Company Number: AUR-APL-2012-03359

PATIENT
  Age: 53 Year
  Sex: Male

DRUGS (5)
  1. SIMVASTATIN [Suspect]
     Indication: PRODUCT USED FOR UNKNOWN INDICATION
     Dosage: At night (40 MG, 1 IN 1 D), Oral
     Route: 048
     Dates: start: 20110401, end: 20120610
  2. ASPIRIN [Concomitant]
  3. BISOPROLOL FUMARATE [Concomitant]
  4. CLOPIDOGREL [Concomitant]
  5. RAMIPRIL [Concomitant]

REACTIONS (7)
  - Pancreatitis necrotising [None]
  - Intestinal perforation [None]
  - Renal failure [None]
  - Haemodialysis [None]
  - Alanine aminotransferase increased [None]
  - Blood alkaline phosphatase increased [None]
  - White blood cell count increased [None]
